FAERS Safety Report 20320428 (Version 1)
Quarter: 2022Q1

REPORT INFORMATION
  Report Type: Report from Study
  Country: US (occurrence: None)
  Receive Date: 20220111
  Receipt Date: 20220111
  Transmission Date: 20220423
  Serious: Yes (Other)
  Sender: FDA-Public Use
  Company Number: 2022A009063

PATIENT
  Sex: Male

DRUGS (1)
  1. LYNPARZA [Suspect]
     Active Substance: OLAPARIB
     Route: 048

REACTIONS (6)
  - Osteomyelitis [Recovering/Resolving]
  - Rash [Recovering/Resolving]
  - Rash pruritic [Recovering/Resolving]
  - Myalgia [Recovering/Resolving]
  - Dry skin [Recovering/Resolving]
  - Skin exfoliation [Recovering/Resolving]
